APPROVED DRUG PRODUCT: AMOXICILLIN
Active Ingredient: AMOXICILLIN
Strength: 250MG/5ML
Dosage Form/Route: FOR SUSPENSION;ORAL
Application: A062927 | Product #002
Applicant: PH HEALTH LTD
Approved: Nov 25, 1988 | RLD: No | RS: No | Type: DISCN